FAERS Safety Report 23679135 (Version 1)
Quarter: 2024Q1

REPORT INFORMATION
  Report Type: Spontaneous
  Country: US (occurrence: US)
  Receive Date: 20240327
  Receipt Date: 20240327
  Transmission Date: 20240409
  Serious: Yes (Other)
  Sender: FDA-Public Use
  Company Number: US-JAZZ PHARMACEUTICALS-2024-US-004875

PATIENT
  Age: 55 Year
  Sex: Male

DRUGS (1)
  1. EPIDIOLEX [Suspect]
     Active Substance: CANNABIDIOL
     Indication: Toothache

REACTIONS (4)
  - Angina pectoris [Unknown]
  - Nausea [Unknown]
  - Paraesthesia [Unknown]
  - Hot flush [Unknown]
